FAERS Safety Report 11434700 (Version 1)
Quarter: 2015Q3

REPORT INFORMATION
  Report Type: Report from Study
  Country: BR (occurrence: BR)
  Receive Date: 20150831
  Receipt Date: 20150831
  Transmission Date: 20151125
  Serious: Yes (Hospitalization, Other)
  Sender: FDA-Public Use
  Company Number: PHHY2015BR103667

PATIENT
  Sex: Female
  Weight: 49 kg

DRUGS (3)
  1. SANDOSTATIN LAR DEPOT [Suspect]
     Active Substance: OCTREOTIDE ACETATE
     Indication: NEUROENDOCRINE TUMOUR
     Dosage: 2 DF, QMO
     Route: 030
     Dates: start: 200810
  2. SANDOSTATIN LAR DEPOT [Suspect]
     Active Substance: OCTREOTIDE ACETATE
     Indication: METASTASES TO LIVER
  3. SANDOSTATIN LAR DEPOT [Suspect]
     Active Substance: OCTREOTIDE ACETATE
     Indication: SMALL INTESTINE CARCINOMA METASTATIC

REACTIONS (19)
  - Weight decreased [Recovering/Resolving]
  - Nosocomial infection [Recovering/Resolving]
  - Syncope [Recovered/Resolved]
  - Vomiting [Recovered/Resolved]
  - Speech disorder [Unknown]
  - Pain [Unknown]
  - Candida infection [Recovering/Resolving]
  - Malaise [Recovered/Resolved]
  - Back pain [Unknown]
  - Nausea [Unknown]
  - Gait disturbance [Unknown]
  - Urinary tract infection [Recovering/Resolving]
  - Pulmonary embolism [Recovering/Resolving]
  - Asthenia [Unknown]
  - Anaemia [Unknown]
  - Spinal pain [Not Recovered/Not Resolved]
  - Body height decreased [Unknown]
  - Coma [Recovering/Resolving]
  - Eschar [Recovering/Resolving]

NARRATIVE: CASE EVENT DATE: 2015
